FAERS Safety Report 5179455-3 (Version None)
Quarter: 2006Q4

REPORT INFORMATION
  Report Type: 
  Country: None (occurrence: None)
  Receive Date: 20061219
  Receipt Date: 20061215
  Transmission Date: 20070319
  Serious: Yes (Other)
  Sender: FDA-Public Use
  Company Number: AU-BRISTOL-MYERS SQUIBB COMPANY-13614136

PATIENT
  Sex: Female

DRUGS (1)
  1. HYDREA [Suspect]

REACTIONS (1)
  - INTERSTITIAL LUNG DISEASE [None]
